FAERS Safety Report 13087224 (Version 1)
Quarter: 2017Q1

REPORT INFORMATION
  Report Type: Spontaneous
  Country: US (occurrence: US)
  Receive Date: 20170105
  Receipt Date: 20170105
  Transmission Date: 20170428
  Serious: Yes (Hospitalization)
  Sender: FDA-Public Use
  Company Number: US-ASTRAZENECA-2017SE00539

PATIENT
  Age: 860 Month
  Sex: Male
  Weight: 73 kg

DRUGS (22)
  1. DALIRESP [Suspect]
     Active Substance: ROFLUMILAST
     Indication: BRONCHITIS
     Route: 048
     Dates: start: 20161215, end: 20161217
  2. CIALIS [Concomitant]
     Active Substance: TADALAFIL
     Indication: REPRODUCTIVE TRACT DISORDER
     Route: 048
  3. PROAIR HFA [Concomitant]
     Active Substance: ALBUTEROL SULFATE
     Indication: INHALATION THERAPY
     Dosage: AS REQUIRED
     Route: 055
     Dates: start: 2014
  4. ALBUTEROL SULFATE/ IPRATARPIUM BROMIDE [Concomitant]
     Dosage: 3.0 MG / 0.5 MG EVERY 6 HOURS OR EVERY 4 HOURS WITH FLAREUPS
     Route: 055
  5. ANORO ELLIPTA [Concomitant]
     Active Substance: UMECLIDINIUM BROMIDE\VILANTEROL TRIFENATATE
     Dosage: 62.5 MCG / 25 MCG, DAILY
     Route: 055
     Dates: start: 201611
  6. FAMOTODINE [Concomitant]
     Route: 048
  7. BABY ASPIRIN [Concomitant]
     Active Substance: ASPIRIN
     Dosage: 81.0MG UNKNOWN
     Route: 048
  8. CELEXA [Concomitant]
     Active Substance: CITALOPRAM HYDROBROMIDE
     Route: 048
  9. SWISH AND SPIT [Concomitant]
     Indication: CANDIDA INFECTION
     Dosage: DOSE 1 MG AT HOME, 5 MG DURING NOV 2016 HOSPITALIZATION
     Route: 048
  10. MUCCINEX OTC [Concomitant]
     Indication: SECRETION DISCHARGE
     Route: 048
  11. MELATONIN [Concomitant]
     Active Substance: MELATONIN
     Indication: SLEEP DISORDER
     Route: 048
  12. ALBUTEROL. [Concomitant]
     Active Substance: ALBUTEROL
     Route: 055
     Dates: start: 1995
  13. SYMBICORT [Suspect]
     Active Substance: BUDESONIDE\FORMOTEROL FUMARATE DIHYDRATE
     Indication: CHRONIC OBSTRUCTIVE PULMONARY DISEASE
     Dosage: 160/4.5 MCG, TWO PUFFS TWICE DAILY
     Route: 055
     Dates: start: 201506, end: 20161124
  14. PREDNISONE. [Suspect]
     Active Substance: PREDNISONE
     Route: 065
  15. PROBIOTIC [Concomitant]
     Active Substance: PROBIOTICS NOS
     Route: 048
  16. XANAX [Concomitant]
     Active Substance: ALPRAZOLAM
     Route: 048
  17. MIRTAZAPINE. [Concomitant]
     Active Substance: MIRTAZAPINE
     Indication: APPETITE DISORDER
     Route: 048
  18. MIRTAZAPINE. [Concomitant]
     Active Substance: MIRTAZAPINE
     Indication: SLEEP DISORDER
     Route: 048
  19. SIMVASTATIN. [Concomitant]
     Active Substance: SIMVASTATIN
     Indication: BLOOD CHOLESTEROL ABNORMAL
     Route: 048
  20. CENTRIUM SILVER [Concomitant]
  21. VITAMIN B12 [Concomitant]
     Active Substance: CYANOCOBALAMIN
  22. ANTIBIOTICS [Suspect]
     Active Substance: UNSPECIFIED INGREDIENT
     Route: 065

REACTIONS (19)
  - Bronchitis [Unknown]
  - Product use issue [Unknown]
  - Weight increased [Unknown]
  - Candida infection [Recovered/Resolved]
  - Intentional product misuse [Recovered/Resolved]
  - Clostridium difficile infection [Unknown]
  - Chronic obstructive pulmonary disease [Unknown]
  - Mood swings [Unknown]
  - Weight decreased [Unknown]
  - Anxiety [Unknown]
  - Diarrhoea [Unknown]
  - Pneumonia [Unknown]
  - Agitation [Unknown]
  - Dyspnoea [Unknown]
  - Fall [Unknown]
  - Off label use [Recovered/Resolved]
  - Nasopharyngitis [Unknown]
  - Confusional state [Unknown]
  - Asthenia [Unknown]

NARRATIVE: CASE EVENT DATE: 201506
